FAERS Safety Report 7290193-3 (Version None)
Quarter: 2011Q1

REPORT INFORMATION
  Report Type: 
  Country: None (occurrence: None)
  Receive Date: 20110214
  Receipt Date: 20110203
  Transmission Date: 20110831
  Serious: Yes (Hospitalization, Disabling)
  Sender: FDA-Public Use
  Company Number: PHFR2011GB00739

PATIENT
  Sex: Female

DRUGS (2)
  1. EXJADE [Suspect]
     Indication: SICKLE CELL ANAEMIA
     Dosage: 1250 MG, UNK
     Route: 048
  2. EXJADE [Suspect]
     Dosage: 625 MG DAILY
     Route: 048

REACTIONS (1)
  - DIARRHOEA [None]
